FAERS Safety Report 5423815-X (Version None)
Quarter: 2007Q3

REPORT INFORMATION
  Report Type: 
  Country: None (occurrence: None)
  Receive Date: 20070727
  Receipt Date: 20070516
  Transmission Date: 20080115
  Serious: No
  Sender: FDA-Public Use
  Company Number: 263784

PATIENT
  Age: 58 Year
  Sex: Female
  Weight: 99.8 kg

DRUGS (2)
  1. LEVEMIR FLEXPEN (INSULIN DETEMIR) SOLUTION FOR INJECTION, .0024MOL [Suspect]
     Indication: INSULIN-REQUIRING TYPE II DIABETES MELLITUS
     Dosage: 57 IU, QD, SUBCUTANEOUS
     Route: 058
  2. NOVOLOG [Suspect]
     Indication: INSULIN-REQUIRING TYPE II DIABETES MELLITUS
     Dosage: 30 IU, TID, SUBCUTANEOUS
     Route: 058

REACTIONS (1)
  - BLOOD GLUCOSE INCREASED [None]
